FAERS Safety Report 4470709-2 (Version None)
Quarter: 2004Q4

REPORT INFORMATION
  Report Type: 
  Country: None (occurrence: None)
  Receive Date: 20041005
  Receipt Date: 20040921
  Transmission Date: 20050328
  Serious: Yes (Death, Hospitalization)
  Sender: FDA-Public Use
  Company Number: 208826

PATIENT
  Age: 52 Year
  Sex: Male

DRUGS (3)
  1. AVASTIN [Suspect]
     Indication: HEPATIC NEOPLASM MALIGNANT
     Dosage: Q3W, INTRAVENOUS
     Route: 042
     Dates: start: 20040826, end: 20040826
  2. OXALIPLATIN [Concomitant]
     Indication: HEPATIC NEOPLASM MALIGNANT
     Dosage: Q3W, INTRAVENOUS
     Route: 042
  3. CAPECITABINE (CAPECITABINE) [Suspect]
     Indication: HEPATIC NEOPLASM MALIGNANT
     Dosage: ORAL
     Route: 048
     Dates: start: 20040827, end: 20040828

REACTIONS (17)
  - ASCITES [None]
  - BLOOD GLUCOSE INCREASED [None]
  - BLOOD POTASSIUM INCREASED [None]
  - CHEST X-RAY ABNORMAL [None]
  - DUODENAL ULCER PERFORATION [None]
  - GASTROINTESTINAL PERFORATION [None]
  - HAEMATOCRIT DECREASED [None]
  - HAEMOGLOBIN DECREASED [None]
  - HEPATIC CANCER METASTATIC [None]
  - HEPATIC CIRRHOSIS [None]
  - MALIGNANT OMENTUM NEOPLASM [None]
  - METASTASES TO PERITONEUM [None]
  - NAUSEA [None]
  - PERITONITIS [None]
  - PROTHROMBIN TIME PROLONGED [None]
  - RETCHING [None]
  - SCAN ABDOMEN ABNORMAL [None]
